FAERS Safety Report 22038138 (Version 1)
Quarter: 2023Q1

REPORT INFORMATION
  Report Type: Spontaneous
  Country: US (occurrence: US)
  Receive Date: 20230227
  Receipt Date: 20230227
  Transmission Date: 20230418
  Serious: No
  Sender: FDA-Public Use
  Company Number: US-IGSA-BIG0018545

PATIENT
  Age: 67 Year
  Sex: Male
  Weight: 81 kg

DRUGS (6)
  1. PROLASTIN-C LIQUID [Suspect]
     Active Substance: .ALPHA.1-PROTEINASE INHIBITOR HUMAN
     Indication: Alpha-1 antitrypsin deficiency
     Dosage: 4860 MILLIGRAM, Q.WK.
     Route: 042
     Dates: start: 20220415, end: 20220415
  2. PROLASTIN-C LIQUID [Suspect]
     Active Substance: .ALPHA.1-PROTEINASE INHIBITOR HUMAN
     Dosage: 4860 MILLIGRAM, Q.WK.
     Route: 042
     Dates: start: 20220202
  3. ELIQUIS [Concomitant]
     Active Substance: APIXABAN
  4. SPIRIVA [Concomitant]
     Active Substance: TIOTROPIUM BROMIDE MONOHYDRATE
  5. TAMSULOSIN HYDROCHLORIDE [Concomitant]
     Active Substance: TAMSULOSIN HYDROCHLORIDE
  6. VENTOLIN HFA [Concomitant]
     Active Substance: ALBUTEROL SULFATE

REACTIONS (1)
  - Dizziness [Not Recovered/Not Resolved]

NARRATIVE: CASE EVENT DATE: 20220404
